FAERS Safety Report 9252350 (Version 1)
Quarter: 2013Q1

REPORT INFORMATION
  Report Type: Spontaneous
  Country: US (occurrence: None)
  Receive Date: 20130305
  Receipt Date: 20130305
  Transmission Date: 20140127
  Serious: Yes (Other)
  Sender: FDA-Public Use
  Company Number: 163-21880-12082969

PATIENT
  Age: 73 Year
  Sex: Female

DRUGS (9)
  1. REVLIMID [Suspect]
     Indication: PLASMA CELL MYELOMA
     Dosage: 25 MG, 21 IN 28 D, PO
     Route: 048
     Dates: start: 201201, end: 201204
  2. DEXAMETHASONE (DEXAMETHASONE) [Concomitant]
  3. ENOXAPARIN (ENOXAPARIN) [Concomitant]
  4. WARFARIN (WARFARIN) [Concomitant]
  5. ACYCLOVIR (ACICLOVIR) [Concomitant]
  6. HCTZ (HYDROCHLOROTHIAZIDE) [Concomitant]
  7. FUROSEMIDE (FUROSEMIDE) [Concomitant]
  8. LISINOPRIL(LISINOPRIL) [Concomitant]
  9. SIMVASTATIN (SIMVASTATIN) [Concomitant]

REACTIONS (3)
  - Neutropenia [None]
  - Upper respiratory tract infection [None]
  - Liver function test abnormal [None]
